FAERS Safety Report 13758972 (Version 1)
Quarter: 2017Q3

REPORT INFORMATION
  Report Type: Spontaneous
  Country: US (occurrence: US)
  Receive Date: 20170717
  Receipt Date: 20170717
  Transmission Date: 20171127
  Serious: Yes (Other)
  Sender: FDA-Public Use
  Company Number: US-APOTEX-2017AP015524

PATIENT
  Age: 72 Year
  Sex: Male

DRUGS (3)
  1. IMATINIB MESYLATE TABLETS [Suspect]
     Active Substance: IMATINIB MESYLATE
     Indication: CHRONIC MYELOID LEUKAEMIA
     Dosage: 400 MG, QD
     Route: 048
  2. DASATINIB TABLETS [Suspect]
     Active Substance: DASATINIB
     Indication: CHRONIC MYELOID LEUKAEMIA
     Dosage: 50 MG, DAILY
     Route: 065
  3. DASATINIB TABLETS [Suspect]
     Active Substance: DASATINIB
     Dosage: 100 MG, QD
     Route: 065

REACTIONS (4)
  - Drug resistance [Unknown]
  - Skin depigmentation [Recovering/Resolving]
  - Skin discolouration [Recovered/Resolved]
  - Skin hypopigmentation [Recovering/Resolving]
